FAERS Safety Report 15319166 (Version 1)
Quarter: 2018Q3

REPORT INFORMATION
  Report Type: Spontaneous
  Country: US (occurrence: US)
  Receive Date: 20180820
  Receipt Date: 20180820
  Transmission Date: 20181010
  Serious: Yes (Hospitalization)
  Sender: FDA-Public Use
  Company Number: None

PATIENT
  Age: 59 Year
  Sex: Male
  Weight: 62.4 kg

DRUGS (1)
  1. YESCARTA [Suspect]
     Active Substance: AXICABTAGENE CILOLEUCEL
     Indication: DIFFUSE LARGE B-CELL LYMPHOMA
     Dosage: ?          OTHER FREQUENCY:ONCE ON 1/24/2018;?
     Route: 042
     Dates: start: 20180124, end: 20180124

REACTIONS (3)
  - Neurotoxicity [None]
  - Infusion related reaction [None]
  - Cytokine release syndrome [None]

NARRATIVE: CASE EVENT DATE: 20180124
